FAERS Safety Report 13558934 (Version 1)
Quarter: 2017Q2

REPORT INFORMATION
  Report Type: Spontaneous
  Country: US (occurrence: US)
  Receive Date: 20170517
  Receipt Date: 20170517
  Transmission Date: 20170830
  Serious: No
  Sender: FDA-Public Use
  Company Number: None

PATIENT
  Age: 51 Year
  Sex: Male

DRUGS (2)
  1. HARVONI [Suspect]
     Active Substance: LEDIPASVIR\SOFOSBUVIR
     Dosage: 90-400MG QD ORAL
     Route: 048
     Dates: start: 20170329, end: 20170517
  2. RIBAVIRIN TAB 200MG [Suspect]
     Active Substance: RIBAVIRIN
     Dosage: 90-400MG QD ORAL
     Route: 048
     Dates: start: 20170329, end: 20170517

REACTIONS (1)
  - Rash [None]

NARRATIVE: CASE EVENT DATE: 20170329
